FAERS Safety Report 6617629-2 (Version None)
Quarter: 2010Q1

REPORT INFORMATION
  Report Type: 
  Country: None (occurrence: None)
  Receive Date: 20100308
  Receipt Date: 20100225
  Transmission Date: 20100710
  Serious: Yes (Death, Hospitalization)
  Sender: FDA-Public Use
  Company Number: US-BIOGENIDEC-2008BI022195

PATIENT
  Age: 63 Year
  Sex: Male
  Weight: 88 kg

DRUGS (5)
  1. AVONEX [Suspect]
     Indication: MULTIPLE SCLEROSIS
     Route: 030
     Dates: start: 19991001
  2. AVONEX [Suspect]
     Route: 030
     Dates: end: 20081001
  3. AVONEX [Suspect]
     Route: 030
  4. OXYCODONE HCL [Concomitant]
  5. MORPHINE [Concomitant]

REACTIONS (7)
  - BLADDER CANCER STAGE II [None]
  - BLOOD URINE PRESENT [None]
  - DEATH [None]
  - SUPPORTIVE CARE [None]
  - VOMITING [None]
  - WEIGHT DECREASED [None]
  - WOUND INFECTION [None]
